FAERS Safety Report 19902502 (Version 2)
Quarter: 2021Q4

REPORT INFORMATION
  Report Type: Spontaneous
  Country: US (occurrence: US)
  Receive Date: 20210930
  Receipt Date: 20211227
  Transmission Date: 20220303
  Serious: No
  Sender: FDA-Public Use
  Company Number: US-SANOFI-00784524

PATIENT
  Sex: Female

DRUGS (1)
  1. LANTUS SOLOSTAR [Suspect]
     Active Substance: INSULIN GLARGINE
     Indication: Type 2 diabetes mellitus
     Dosage: 10-12 UNIT,QD
     Route: 065
     Dates: start: 2019

REACTIONS (3)
  - Blood glucose abnormal [Unknown]
  - Drug dose omission by device [Unknown]
  - Device issue [Unknown]
